FAERS Safety Report 12249629 (Version 1)
Quarter: 2016Q2

REPORT INFORMATION
  Report Type: Spontaneous
  Country: US (occurrence: US)
  Receive Date: 20160408
  Receipt Date: 20160408
  Transmission Date: 20160815
  Serious: Yes (Other)
  Sender: FDA-Public Use
  Company Number: US-AMGEN-USASP2016042126

PATIENT
  Age: 65 Year
  Sex: Female

DRUGS (1)
  1. ENBREL [Suspect]
     Active Substance: ETANERCEPT
     Indication: RHEUMATOID ARTHRITIS
     Dosage: UNK UNK, QWK
     Route: 065
     Dates: start: 2016

REACTIONS (17)
  - Pain in extremity [Unknown]
  - Rheumatoid arthritis [Unknown]
  - Drug effect delayed [Unknown]
  - Neuropathy peripheral [Unknown]
  - Device issue [Unknown]
  - Nervous system disorder [Unknown]
  - Activities of daily living impaired [Unknown]
  - Device difficult to use [Unknown]
  - Stress [Unknown]
  - Insomnia [Unknown]
  - Injection site bruising [Not Recovered/Not Resolved]
  - Injection site pain [Unknown]
  - Pain [Unknown]
  - Gait disturbance [Unknown]
  - Muscular weakness [Unknown]
  - Rhinorrhoea [Not Recovered/Not Resolved]
  - Hypersensitivity [Unknown]

NARRATIVE: CASE EVENT DATE: 2016
